FAERS Safety Report 21295632 (Version 5)
Quarter: 2022Q3

REPORT INFORMATION
  Report Type: Spontaneous
  Country: US (occurrence: US)
  Receive Date: 20220906
  Receipt Date: 20220914
  Transmission Date: 20221027
  Serious: Yes (Death)
  Sender: FDA-Public Use
  Company Number: US-UNITED THERAPEUTICS-UNT-2022-018428

PATIENT
  Age: 66 Year
  Sex: Female
  Weight: 63.946 kg

DRUGS (5)
  1. REMODULIN [Suspect]
     Active Substance: TREPROSTINIL
     Indication: Pulmonary arterial hypertension
     Dosage: UNK, CONTINUING
     Route: 041
     Dates: start: 20171121
  2. REMODULIN [Suspect]
     Active Substance: TREPROSTINIL
     Dosage: 0.0756 ?G/KG, CONTINUING
     Route: 041
  3. OPSUMIT [Concomitant]
     Active Substance: MACITENTAN
     Indication: Product used for unknown indication
     Dosage: UNK
     Route: 065
  4. ELIQUIS [Concomitant]
     Active Substance: APIXABAN
     Indication: Product used for unknown indication
     Dosage: UNK
     Route: 065
  5. REVATIO [Concomitant]
     Active Substance: SILDENAFIL CITRATE
     Indication: Product used for unknown indication
     Dosage: UNK
     Route: 065

REACTIONS (2)
  - General physical health deterioration [Fatal]
  - Feeling abnormal [Unknown]

NARRATIVE: CASE EVENT DATE: 20220801
